FAERS Safety Report 6297113-9 (Version None)
Quarter: 2009Q3

REPORT INFORMATION
  Report Type: 
  Country: None (occurrence: None)
  Receive Date: 20090724
  Receipt Date: 20090224
  Transmission Date: 20100115
  Serious: Yes (Hospitalization)
  Sender: FDA-Public Use
  Company Number: 2008BI028491

PATIENT
  Age: 52 Year
  Sex: Female

DRUGS (3)
  1. TYSABRI [Suspect]
     Indication: MULTIPLE SCLEROSIS
     Dosage: 300 MG;QM;IV
     Route: 042
     Dates: start: 20080820
  2. AVONEX [Concomitant]
  3. COPAXONE [Concomitant]

REACTIONS (7)
  - ABASIA [None]
  - DIZZINESS [None]
  - FALL [None]
  - FATIGUE [None]
  - MULTIPLE SCLEROSIS RELAPSE [None]
  - NASOPHARYNGITIS [None]
  - URINARY TRACT INFECTION [None]
